FAERS Safety Report 17518888 (Version 2)
Quarter: 2020Q2

REPORT INFORMATION
  Report Type: Spontaneous
  Country: US (occurrence: US)
  Receive Date: 20200309
  Receipt Date: 20200601
  Transmission Date: 20200713
  Serious: No
  Sender: FDA-Public Use
  Company Number: US-PFIZER INC-2020103208

PATIENT
  Sex: Female

DRUGS (3)
  1. ALEVE [Suspect]
     Active Substance: NAPROXEN SODIUM
     Dosage: UNK
  2. AZITHROMYCIN ANHYDROUS. [Suspect]
     Active Substance: AZITHROMYCIN ANHYDROUS
     Dosage: UNK
  3. ERYTHROMYCIN. [Suspect]
     Active Substance: ERYTHROMYCIN
     Dosage: UNK

REACTIONS (1)
  - Drug hypersensitivity [Unknown]
